FAERS Safety Report 9510040 (Version 1)
Quarter: 2013Q3

REPORT INFORMATION
  Report Type: Spontaneous
  Country: US (occurrence: US)
  Receive Date: 20130909
  Receipt Date: 20130909
  Transmission Date: 20140515
  Serious: No
  Sender: FDA-Public Use
  Company Number: US-BRISTOL-MYERS SQUIBB COMPANY-17142654

PATIENT
  Age: 48 Year
  Sex: Female

DRUGS (1)
  1. ABILIFY [Suspect]
     Indication: DEPRESSION
     Dosage: END OF SEP2012:DOSE INCREASED:10MG ONCE DAILY.?PREV DOSE:5MG/DAY
     Route: 048
     Dates: start: 201207, end: 20121023

REACTIONS (1)
  - Dyskinesia [Unknown]
